FAERS Safety Report 10018996 (Version 1)
Quarter: 2014Q1

REPORT INFORMATION
  Report Type: Spontaneous
  Country: RU (occurrence: RU)
  Receive Date: 20140318
  Receipt Date: 20140318
  Transmission Date: 20141002
  Serious: Yes (Disabling)
  Sender: FDA-Public Use
  Company Number: RU-VIIV HEALTHCARE LIMITED-B0977460A

PATIENT
  Age: 36 Year
  Sex: Male

DRUGS (1)
  1. ZIAGEN [Suspect]
     Indication: PRODUCT USED FOR UNKNOWN INDICATION
     Route: 048

REACTIONS (4)
  - Myocardial ischaemia [Recovering/Resolving]
  - Myocardial infarction [Recovering/Resolving]
  - Ventricular arrhythmia [Recovering/Resolving]
  - Arrhythmia supraventricular [Recovering/Resolving]
